FAERS Safety Report 7761467-4 (Version None)
Quarter: 2011Q4

REPORT INFORMATION
  Report Type: 
  Country: None (occurrence: None)
  Receive Date: 20110920
  Receipt Date: 20110919
  Transmission Date: 20120403
  Serious: Yes (Death, Life-Threatening, Hospitalization, Disabling)
  Sender: FDA-Public Use
  Company Number: LV-B.I. PHARMACEUTICALS,INC./RIDGEFIELD-2011-AP-00238AP

PATIENT
  Sex: Female
  Weight: 99 kg

DRUGS (3)
  1. ATORVASTATIN [Concomitant]
     Indication: DYSLIPIDAEMIA
     Dosage: 10 MG
     Route: 048
     Dates: start: 20100107, end: 20110421
  2. BI 1356+PIOGLITAZONE [Suspect]
     Indication: TYPE 2 DIABETES MELLITUS
     Dosage: FORMULATION: TABLET/CAPSULE; DAILY DOSE BI 1356/PIOGLITAZONE 5MG/30MG
     Route: 048
     Dates: start: 20110314, end: 20110421
  3. LATANOPROST [Concomitant]
     Indication: GLAUCOMA
     Dosage: 4 ANZ
     Dates: start: 20080410, end: 20110603

REACTIONS (5)
  - HYPERTENSIVE CRISIS [None]
  - ENCEPHALITIS [None]
  - CORONARY ARTERY DISEASE [None]
  - CARDIAC FAILURE ACUTE [None]
  - ACUTE MYOCARDIAL INFARCTION [None]
